FAERS Safety Report 9817510 (Version 2)
Quarter: 2014Q1

REPORT INFORMATION
  Report Type: Report from Study
  Country: DE (occurrence: DE)
  Receive Date: 20140115
  Receipt Date: 20140115
  Transmission Date: 20141002
  Serious: Yes (Life-Threatening, Other)
  Sender: FDA-Public Use
  Company Number: DE-ROCHE-1316620

PATIENT
  Age: 47 Year
  Sex: Male
  Weight: 50 kg

DRUGS (12)
  1. PEG-INTERFERON ALFA 2A [Suspect]
     Indication: CHRONIC HEPATITIS C
     Route: 058
     Dates: start: 20130115, end: 20130225
  2. PEG-INTERFERON ALFA 2A [Suspect]
     Route: 058
     Dates: start: 20130226, end: 20131220
  3. RIBAVIRIN [Suspect]
     Indication: CHRONIC HEPATITIS C
     Dosage: 400 MG IN THE MORNING, 600 MG IN THE EVENING
     Route: 048
     Dates: start: 20130115, end: 20130122
  4. RIBAVIRIN [Suspect]
     Dosage: 400 MG IN THE MORNING, 400 MG IN THE EVENING
     Route: 048
     Dates: start: 20130123, end: 20130130
  5. RIBAVIRIN [Suspect]
     Dosage: 200 MG IN THE MORNING, 400 MG IN THE EVENING
     Route: 048
     Dates: start: 20130131, end: 20131220
  6. TELAPREVIR [Suspect]
     Indication: CHRONIC HEPATITIS C
     Route: 065
     Dates: start: 20130115, end: 20130409
  7. NORVIR [Concomitant]
     Indication: HIV INFECTION
     Route: 048
     Dates: start: 20130115, end: 20131223
  8. REYATAZ [Concomitant]
     Indication: HIV INFECTION
     Route: 048
     Dates: start: 20130115, end: 20131223
  9. EMTRIVA [Concomitant]
     Indication: HIV INFECTION
     Route: 048
     Dates: start: 20130115, end: 20131223
  10. ISENTRESS [Concomitant]
     Indication: HIV INFECTION
     Route: 048
     Dates: start: 20130115, end: 20131223
  11. CO-TRIMOXAZOLE [Concomitant]
     Route: 048
     Dates: start: 20130514
  12. VAXIGRIP [Concomitant]
     Indication: ANTIVIRAL PROPHYLAXIS
     Dosage: ONE APPLICATION
     Route: 030
     Dates: start: 20131011, end: 20131011

REACTIONS (2)
  - Pancytopenia [Not Recovered/Not Resolved]
  - Haemoglobin decreased [Not Recovered/Not Resolved]
